FAERS Safety Report 24996416 (Version 1)
Quarter: 2025Q1

REPORT INFORMATION
  Report Type: Spontaneous
  Country: US (occurrence: US)
  Receive Date: 20250221
  Receipt Date: 20250221
  Transmission Date: 20250409
  Serious: Yes (Disabling)
  Sender: CB FLEET
  Company Number: US-C. B. Fleet Co., Inc.-202209-US-002913

PATIENT
  Sex: Female

DRUGS (1)
  1. DEBROX [Suspect]
     Active Substance: CARBAMIDE PEROXIDE
     Indication: Accidental exposure to product
     Route: 001

REACTIONS (7)
  - Hypoacusis [Not Recovered/Not Resolved]
  - Otorrhoea [Unknown]
  - Tinnitus [Unknown]
  - Ear pain [Unknown]
  - Wrong product administered [None]
  - Dizziness [Not Recovered/Not Resolved]
  - Nausea [Not Recovered/Not Resolved]
